FAERS Safety Report 4822060-6 (Version None)
Quarter: 2005Q4

REPORT INFORMATION
  Report Type: 
  Country: None (occurrence: None)
  Receive Date: 20051102
  Receipt Date: 20051017
  Transmission Date: 20060501
  Serious: Yes (Hospitalization)
  Sender: FDA-Public Use
  Company Number: GBS051018605

PATIENT
  Age: 14 Year
  Sex: Female
  Weight: 45 kg

DRUGS (5)
  1. STRATTERA [Suspect]
     Indication: ATTENTION DEFICIT/HYPERACTIVITY DISORDER
     Dosage: 60 MG
  2. GAVISCON [Concomitant]
  3. BECONASE [Concomitant]
  4. SALBUTAMOL [Concomitant]
  5. ACETAMINOPHEN [Concomitant]

REACTIONS (2)
  - CONTUSION [None]
  - HAEMATOCHEZIA [None]
